FAERS Safety Report 7907923-7 (Version None)
Quarter: 2011Q4

REPORT INFORMATION
  Report Type: 
  Country: None (occurrence: None)
  Receive Date: 20111110
  Receipt Date: 20111110
  Transmission Date: 20120403
  Serious: No
  Sender: FDA-Public Use
  Company Number: US-BAYER-2011-108937

PATIENT
  Age: 57 Year
  Sex: Male
  Weight: 111 kg

DRUGS (3)
  1. ULTRAVIST 150 [Suspect]
     Indication: HEPATIC CIRRHOSIS
  2. BARIUM [Concomitant]
  3. ULTRAVIST 150 [Suspect]
     Indication: COMPUTERISED TOMOGRAM
     Dosage: 120 ML, ONCE
     Route: 042
     Dates: start: 20111110, end: 20111110

REACTIONS (2)
  - URTICARIA [None]
  - PRURITUS [None]
